FAERS Safety Report 11548720 (Version 1)
Quarter: 2015Q3

REPORT INFORMATION
  Report Type: Spontaneous
  Country: US (occurrence: US)
  Receive Date: 20150903
  Receipt Date: 20150903
  Transmission Date: 20151125
  Serious: No
  Sender: FDA-Public Use
  Company Number: US-ELI_LILLY_AND_COMPANY-US201302004173

PATIENT
  Age: 83 Year
  Sex: Female

DRUGS (21)
  1. ESTRACE [Concomitant]
     Active Substance: ESTRADIOL
     Dosage: 0.01 %, QD
  2. IMDUR [Concomitant]
     Active Substance: ISOSORBIDE MONONITRATE
     Dosage: 60 MG, QD
  3. LIPITOR [Concomitant]
     Active Substance: ATORVASTATIN CALCIUM
     Dosage: 80 MG, QD
  4. PLETAL [Concomitant]
     Active Substance: CILOSTAZOL
     Dosage: 100 MG, QD
  5. ATROVENT [Concomitant]
     Active Substance: IPRATROPIUM BROMIDE
  6. LISINOPRIL                              /USA/ [Concomitant]
     Active Substance: LISINOPRIL
     Dosage: 20 MG, QD
  7. ALBUTEROL                          /00139501/ [Concomitant]
     Active Substance: ALBUTEROL
     Dosage: UNK, PRN
  8. HUMALOG [Suspect]
     Active Substance: INSULIN LISPRO
     Indication: DIABETES MELLITUS
     Dosage: UNK, QID
     Dates: start: 2011
  9. HUMALOG [Suspect]
     Active Substance: INSULIN LISPRO
     Dosage: UNK, QID
  10. SANCTURA [Concomitant]
     Active Substance: TROSPIUM CHLORIDE
     Dosage: 60 MG, QD
  11. CLARITIN                                /USA/ [Concomitant]
     Dosage: 10 MG, QD
  12. NITRO                              /00003201/ [Concomitant]
     Dosage: 0.4 MG, PRN
  13. AMBIEN [Concomitant]
     Active Substance: ZOLPIDEM TARTRATE
     Dosage: 5 MG, EACH EVENING
  14. PANTOPRAZOLE [Concomitant]
     Active Substance: PANTOPRAZOLE SODIUM
     Dosage: 40 MG, QD
  15. DETROL LA [Concomitant]
     Active Substance: TOLTERODINE TARTRATE
     Dosage: 2 MG, BID
  16. RANITIDINE [Concomitant]
     Active Substance: RANITIDINE\RANITIDINE HYDROCHLORIDE
     Dosage: 150 MG, BID
  17. ASA [Concomitant]
     Active Substance: ASPIRIN
     Dosage: 325 MG, QD
  18. CITRACAL [Concomitant]
     Active Substance: CALCIUM CITRATE
     Dosage: UNK, QD
  19. ATENOLOL. [Concomitant]
     Active Substance: ATENOLOL
     Dosage: 75 MG, QD
  20. CICLOPIROX. [Concomitant]
     Active Substance: CICLOPIROX
     Indication: ONYCHOMYCOSIS
     Dosage: UNK, QD
  21. LANTUS [Concomitant]
     Active Substance: INSULIN GLARGINE
     Dosage: 15 U, QD

REACTIONS (6)
  - Blood glucose decreased [Recovered/Resolved]
  - Stress [Unknown]
  - Visual impairment [Unknown]
  - Pain in extremity [Unknown]
  - Blood glucose increased [Unknown]
  - Underdose [Unknown]

NARRATIVE: CASE EVENT DATE: 201302
